FAERS Safety Report 5809694-7 (Version None)
Quarter: 2008Q3

REPORT INFORMATION
  Report Type: 
  Country: None (occurrence: None)
  Receive Date: 20080709
  Receipt Date: 20080709
  Transmission Date: 20090109
  Serious: Yes (Other)
  Sender: FDA-Public Use
  Company Number: US-GDP-0715263

PATIENT
  Sex: Male

DRUGS (1)
  1. DIFFERIN [Suspect]
     Dosage: TOPICAL
     Route: 061
     Dates: start: 20050101, end: 20050101

REACTIONS (1)
  - DRUG INEFFECTIVE [None]
